FAERS Safety Report 6512074-2 (Version None)
Quarter: 2009Q4

REPORT INFORMATION
  Report Type: 
  Country: None (occurrence: None)
  Receive Date: 20091222
  Receipt Date: 20090528
  Transmission Date: 20100525
  Serious: No
  Sender: FDA-Public Use
  Company Number: US-ASTRAZENECA-2009UW13753

PATIENT
  Age: 85 Year
  Sex: Female
  Weight: 58.1 kg

DRUGS (3)
  1. CRESTOR [Suspect]
     Indication: BLOOD CHOLESTEROL
     Route: 048
     Dates: start: 20090101
  2. TOPROL-XL [Concomitant]
     Route: 048
  3. UNIVASC [Concomitant]

REACTIONS (2)
  - HOT FLUSH [None]
  - LIMB DISCOMFORT [None]
